FAERS Safety Report 8133887-X (Version None)
Quarter: 2012Q1

REPORT INFORMATION
  Report Type: 
  Country: None (occurrence: None)
  Receive Date: 20120213
  Receipt Date: 20120202
  Transmission Date: 20120608
  Serious: Yes (Hospitalization)
  Sender: FDA-Public Use
  Company Number: BR-ELI_LILLY_AND_COMPANY-BR201202001036

PATIENT
  Sex: Female
  Weight: 64 kg

DRUGS (6)
  1. FORTEO [Suspect]
     Dosage: UNK, UNKNOWN
     Route: 065
  2. HYGROTON [Concomitant]
     Dosage: UNK, UNKNOWN
     Route: 065
  3. SYNTHROID [Concomitant]
     Dosage: UNK, UNKNOWN
     Route: 065
  4. LOSARTAN POTASSIUM [Concomitant]
     Dosage: UNK, UNKNOWN
     Route: 065
  5. PANTOPRAZOLE [Concomitant]
     Dosage: UNK, UNKNOWN
     Route: 065
  6. SIMVASTATIN [Concomitant]
     Dosage: UNK, UNKNOWN
     Route: 065

REACTIONS (1)
  - CARDIAC DISORDER [None]
